FAERS Safety Report 4939370-4 (Version None)
Quarter: 2006Q1

REPORT INFORMATION
  Report Type: 
  Country: None (occurrence: None)
  Receive Date: 20060306
  Receipt Date: 20060227
  Transmission Date: 20060701
  Serious: Yes (Hospitalization)
  Sender: FDA-Public Use
  Company Number: 2005-07-1669

PATIENT
  Age: 65 Year
  Sex: Male
  Weight: 55 kg

DRUGS (9)
  1. PEG-INTRON [Suspect]
     Indication: HEPATITIS C
     Dosage: 80 MCG QW# SUBCUTANEOUS
     Route: 058
     Dates: start: 20050318, end: 20050715
  2. PEG-INTRON [Suspect]
     Indication: HEPATITIS C
     Dosage: 80 MCG QW# SUBCUTANEOUS
     Route: 058
     Dates: start: 20050318
  3. PEG-INTRON [Suspect]
     Indication: HEPATITIS C
     Dosage: 80 MCG QW# SUBCUTANEOUS
     Route: 058
     Dates: start: 20051107
  4. REBETOL [Suspect]
     Indication: HEPATITIS C
     Dosage: 600-400*MG ORAL
     Route: 048
     Dates: start: 20050318, end: 20050414
  5. REBETOL [Suspect]
     Indication: HEPATITIS C
     Dosage: 600-400*MG ORAL
     Route: 048
     Dates: start: 20050415, end: 20050720
  6. REBETOL [Suspect]
     Indication: HEPATITIS C
     Dosage: 600-400*MG ORAL
     Route: 048
     Dates: start: 20050318
  7. REBETOL [Suspect]
     Indication: HEPATITIS C
     Dosage: 600-400*MG ORAL
     Route: 048
     Dates: start: 20051107
  8. AMLODIPINE BESILATE TABLETS [Concomitant]
  9. BLOPRESS (CANDESARTAN CILEXETIL) TABLETS [Concomitant]

REACTIONS (4)
  - ANAEMIA [None]
  - CEREBRAL INFARCTION [None]
  - DIZZINESS [None]
  - NAUSEA [None]
